FAERS Safety Report 5951067-0 (Version None)
Quarter: 2008Q4

REPORT INFORMATION
  Report Type: 
  Country: None (occurrence: None)
  Receive Date: 20081111
  Receipt Date: 20081111
  Transmission Date: 20090506
  Serious: Yes (Hospitalization, Disabling)
  Sender: FDA-Public Use
  Company Number: None

PATIENT
  Sex: Female
  Weight: 104.3273 kg

DRUGS (2)
  1. CELEBREX [Suspect]
     Indication: OSTEOARTHRITIS
     Dosage: 200 MG 1 A DAY PO
     Route: 048
     Dates: start: 20030101, end: 20080921
  2. CELEBREX [Suspect]
     Indication: PAIN
     Dosage: 200 MG 1 A DAY PO
     Route: 048
     Dates: start: 20030101, end: 20080921

REACTIONS (1)
  - ISCHAEMIC STROKE [None]
